FAERS Safety Report 17081450 (Version 1)
Quarter: 2019Q4

REPORT INFORMATION
  Report Type: Spontaneous
  Country: US (occurrence: US)
  Receive Date: 20191030
  Receipt Date: 20191030
  Transmission Date: 20200122
  Serious: Yes (Hospitalization)
  Sender: FDA-Public Use
  Company Number: None

PATIENT
  Age: 20 Year

DRUGS (10)
  1. FLUDROCORT TAB [Concomitant]
  2. HUMIRA [Suspect]
     Active Substance: ADALIMUMAB
     Dosage: ?          OTHER DOSE:40MG/0.4ML;?
     Route: 058
  3. HYDROCORT CRE [Concomitant]
  4. BUDESONIDE. [Concomitant]
     Active Substance: BUDESONIDE
  5. LEVORA TAB [Concomitant]
  6. INTROVALE TAB [Concomitant]
  7. NADOLOL TAB [Concomitant]
  8. ONDANSETRON TAB [Concomitant]
  9. TOPIRMATE TAB [Concomitant]
  10. RANTITIDINE [Concomitant]

REACTIONS (1)
  - Hospitalisation [None]

NARRATIVE: CASE EVENT DATE: 20191021
